FAERS Safety Report 18216545 (Version 1)
Quarter: 2020Q3

REPORT INFORMATION
  Report Type: Spontaneous
  Country: GB (occurrence: GB)
  Receive Date: 20200901
  Receipt Date: 20200901
  Transmission Date: 20201103
  Serious: No
  Sender: FDA-Public Use
  Company Number: GB-GW PHARMA-202008GBGW02892

PATIENT

DRUGS (2)
  1. EPIDIOLEX [Suspect]
     Active Substance: CANNABIDIOL
     Indication: EPILEPSY
     Dosage: UNK
     Route: 048
  2. BEDROLITE [Concomitant]
     Indication: EPILEPSY
     Dosage: UNK
     Route: 065

REACTIONS (2)
  - Seizure [Unknown]
  - Drug ineffective [Unknown]
